FAERS Safety Report 5195850-0 (Version None)
Quarter: 2007Q1

REPORT INFORMATION
  Report Type: 
  Country: None (occurrence: None)
  Receive Date: 20070102
  Receipt Date: 20061219
  Transmission Date: 20070707
  Serious: Yes (Other)
  Sender: FDA-Public Use
  Company Number: GBWYE163209OCT06

PATIENT
  Sex: Male

DRUGS (1)
  1. ENBREL [Suspect]
     Indication: PSORIASIS
     Route: 058
     Dates: start: 20060101, end: 20060901

REACTIONS (3)
  - HYPOAESTHESIA [None]
  - LIVER FUNCTION TEST ABNORMAL [None]
  - PARAESTHESIA [None]
